FAERS Safety Report 7993203-0 (Version None)
Quarter: 2011Q4

REPORT INFORMATION
  Report Type: 
  Country: None (occurrence: None)
  Receive Date: 20111219
  Receipt Date: 20110415
  Transmission Date: 20120403
  Serious: No
  Sender: FDA-Public Use
  Company Number: US-ASTRAZENECA-2010SE60970

PATIENT
  Sex: Female

DRUGS (1)
  1. CRESTOR [Suspect]
     Route: 048

REACTIONS (20)
  - CARDIAC FAILURE CONGESTIVE [None]
  - BACK PAIN [None]
  - ARTHROPATHY [None]
  - CELLULITIS [None]
  - FATIGUE [None]
  - SKIN ULCER [None]
  - CORONARY ARTERY DISEASE [None]
  - ESSENTIAL HYPERTENSION [None]
  - ARTHRALGIA [None]
  - DECUBITUS ULCER [None]
  - DIABETIC NEUROPATHY [None]
  - PAIN IN EXTREMITY [None]
  - RESTLESS LEGS SYNDROME [None]
  - DRUG DOSE OMISSION [None]
  - DYSTHYMIC DISORDER [None]
  - OSTEOARTHRITIS [None]
  - CHEST PAIN [None]
  - ANXIETY [None]
  - DIZZINESS [None]
  - OTITIS MEDIA [None]
